FAERS Safety Report 5839118-5 (Version None)
Quarter: 2008Q3

REPORT INFORMATION
  Report Type: 
  Country: None (occurrence: None)
  Receive Date: 20080808
  Receipt Date: 20080729
  Transmission Date: 20090109
  Serious: Yes (Hospitalization)
  Sender: FDA-Public Use
  Company Number: DE-ABBOTT-04P-062-0262082-00

PATIENT
  Age: 47 Year
  Sex: Female

DRUGS (8)
  1. HUMIRA [Suspect]
     Indication: RHEUMATOID ARTHRITIS
     Route: 058
     Dates: start: 20030901, end: 20040201
  2. RITUXIMAB [Suspect]
     Indication: DRUG USE FOR UNKNOWN INDICATION
  3. METHOTREXATE [Suspect]
     Indication: DRUG USE FOR UNKNOWN INDICATION
     Dates: start: 20020719
  4. METHOTREXATE SODIUM [Concomitant]
     Indication: DRUG USE FOR UNKNOWN INDICATION
     Dates: start: 20020719
  5. METHOTREXATE SODIUM [Concomitant]
     Dates: start: 20020701, end: 20020901
  6. SULFASALAZINE [Concomitant]
     Indication: DRUG USE FOR UNKNOWN INDICATION
  7. LEFLUNOMIDE [Concomitant]
     Indication: DRUG USE FOR UNKNOWN INDICATION
     Dates: start: 20020401, end: 20031030
  8. LEFLUNOMIDE [Concomitant]

REACTIONS (6)
  - FOOT OPERATION [None]
  - KNEE ARTHROPLASTY [None]
  - NAUSEA [None]
  - RHEUMATOID ARTHRITIS [None]
  - SYNOVIAL CYST [None]
  - VOMITING [None]
